FAERS Safety Report 17577493 (Version 2)
Quarter: 2020Q1

REPORT INFORMATION
  Report Type: Spontaneous
  Country: US (occurrence: US)
  Receive Date: 20200324
  Receipt Date: 20200326
  Transmission Date: 20200409
  Serious: Yes (Life-Threatening, Other)
  Sender: FDA-Public Use
  Company Number: US-SA-2019SA002543

PATIENT
  Age: 78 Year
  Sex: Female

DRUGS (5)
  1. PRALUENT [Suspect]
     Active Substance: ALIROCUMAB
     Dosage: 75 MG, QOW
     Dates: start: 2020, end: 20200316
  2. PRALUENT [Suspect]
     Active Substance: ALIROCUMAB
     Indication: BLOOD CHOLESTEROL ABNORMAL
     Dosage: 75 MG, QOW
     Dates: start: 201909
  3. EZETIMIBE. [Suspect]
     Active Substance: EZETIMIBE
  4. EZETIMIBE. [Suspect]
     Active Substance: EZETIMIBE
     Dosage: UNK
  5. CRESTOR [Concomitant]
     Active Substance: ROSUVASTATIN CALCIUM

REACTIONS (28)
  - Headache [Not Recovered/Not Resolved]
  - Fear of death [Not Recovered/Not Resolved]
  - Poor quality sleep [Unknown]
  - Drug ineffective [Unknown]
  - Low density lipoprotein increased [Not Recovered/Not Resolved]
  - Facial pain [Unknown]
  - Facial paralysis [Unknown]
  - Blood urea increased [Unknown]
  - Urinary tract infection [Not Recovered/Not Resolved]
  - Bone pain [Unknown]
  - Nervousness [Unknown]
  - Pain in extremity [Unknown]
  - Pain in jaw [Unknown]
  - Hypersensitivity [Not Recovered/Not Resolved]
  - Cerebrovascular accident [Unknown]
  - Hypoaesthesia oral [Unknown]
  - Drooling [Unknown]
  - Hepatic failure [Unknown]
  - Renal failure [Unknown]
  - Neck pain [Not Recovered/Not Resolved]
  - Hypoaesthesia [Unknown]
  - Myalgia [Unknown]
  - Musculoskeletal stiffness [Unknown]
  - Liver function test abnormal [Unknown]
  - Blood creatinine increased [Unknown]
  - Cystitis [Recovered/Resolved]
  - Rash [Unknown]
  - Lipase increased [Unknown]

NARRATIVE: CASE EVENT DATE: 2019
